FAERS Safety Report 8477097-5 (Version None)
Quarter: 2012Q2

REPORT INFORMATION
  Report Type: 
  Country: None (occurrence: None)
  Receive Date: 20120629
  Receipt Date: 20120627
  Transmission Date: 20120825
  Serious: No
  Sender: FDA-Public Use
  Company Number: US-PFIZER INC-2012155196

PATIENT
  Sex: Male
  Weight: 117.91 kg

DRUGS (6)
  1. WARFARIN SODIUM [Concomitant]
     Indication: THROMBOSIS
     Dosage: UNK
  2. VIAGRA [Suspect]
     Indication: ERECTILE DYSFUNCTION
     Dosage: 100 MG, 1X/DAY
     Route: 048
     Dates: start: 20120626
  3. SIMVASTATIN [Concomitant]
     Indication: BLOOD CHOLESTEROL INCREASED
     Dosage: UNK
  4. ZIAC [Concomitant]
     Indication: HYPERTENSION
     Dosage: UNK
  5. NIACIN [Concomitant]
     Dosage: UNK
  6. ENALAPRIL [Concomitant]
     Indication: HYPERTENSION
     Dosage: 40 MG, UNK

REACTIONS (1)
  - DRUG INEFFECTIVE [None]
